FAERS Safety Report 16077532 (Version 1)
Quarter: 2019Q1

REPORT INFORMATION
  Report Type: Spontaneous
  Country: IT (occurrence: IT)
  Receive Date: 20190315
  Receipt Date: 20190315
  Transmission Date: 20190418
  Serious: Yes (Hospitalization)
  Sender: FDA-Public Use
  Company Number: IT-PFIZER INC-2019112561

PATIENT
  Age: 30 Year
  Sex: Male

DRUGS (4)
  1. RELPAX [Suspect]
     Active Substance: ELETRIPTAN HYDROBROMIDE
     Indication: HEADACHE
     Dosage: 80 MG, 1X/DAY
     Route: 048
     Dates: start: 20140218, end: 20190215
  2. SANDOMIGRAN [Suspect]
     Active Substance: PIZOTYLINE
     Indication: HEADACHE
     Dosage: 1.5 MG, 1X/DAY
     Route: 048
     Dates: start: 20140218, end: 20181001
  3. MUTABON [Suspect]
     Active Substance: AMITRIPTYLINE HYDROCHLORIDE\PERPHENAZINE
     Indication: HEADACHE
     Dosage: 24 MG, 1X/DAY
     Route: 048
     Dates: start: 20140218, end: 20181001
  4. IMIGRAN [SUMATRIPTAN SUCCINATE] [Suspect]
     Active Substance: SUMATRIPTAN SUCCINATE
     Indication: HEADACHE
     Dosage: 6 MG, AS NEEDED
     Route: 058
     Dates: start: 20140218

REACTIONS (4)
  - Drug resistance [Recovering/Resolving]
  - Headache [Recovering/Resolving]
  - Drug abuse [Recovering/Resolving]
  - Product use in unapproved indication [Unknown]

NARRATIVE: CASE EVENT DATE: 20140218
